FAERS Safety Report 11811206 (Version 1)
Quarter: 2015Q4

REPORT INFORMATION
  Report Type: Spontaneous
  Country: CA (occurrence: CA)
  Receive Date: 20151208
  Receipt Date: 20151208
  Transmission Date: 20160305
  Serious: Yes (Hospitalization)
  Sender: FDA-Public Use
  Company Number: CA-TEVA-613724ACC

PATIENT
  Age: 10 Year
  Sex: Male
  Weight: 34 kg

DRUGS (8)
  1. VALPROIC ACID. [Suspect]
     Active Substance: VALPROIC ACID
     Indication: SEIZURE
     Dosage: ROUTE OF ADMIN:FEEDING TUBE. 500MG
  2. DOMPERIDONE [Concomitant]
     Active Substance: DOMPERIDONE
  3. LANSOPRAZOLE. [Concomitant]
     Active Substance: LANSOPRAZOLE
     Dosage: CAPSULE, DELAYED RELEASE
  4. SYMBICORT [Concomitant]
     Active Substance: BUDESONIDE\FORMOTEROL FUMARATE DIHYDRATE
  5. GLYCOPYRROLATE INJECTION USP [Concomitant]
     Dosage: LIQUID INTRAMUSCULAR
     Route: 030
  6. CRAN-MAX [Concomitant]
  7. HYDROCHLOROTHIAZIDE. [Suspect]
     Active Substance: HYDROCHLOROTHIAZIDE
     Indication: HYPERCALCAEMIA
  8. HYDROCHLOROTHIAZIDE. [Suspect]
     Active Substance: HYDROCHLOROTHIAZIDE
     Indication: NEPHROLITHIASIS
     Dosage: ROUTE OF ADMIN:FEEDING TUBE. 37.5MG
     Route: 050

REACTIONS (2)
  - Pleural effusion [Recovering/Resolving]
  - Pancreatitis [Recovering/Resolving]
